FAERS Safety Report 9507393 (Version 1)
Quarter: 2013Q3

REPORT INFORMATION
  Report Type: Spontaneous
  Country: DK (occurrence: FR)
  Receive Date: 20130909
  Receipt Date: 20130909
  Transmission Date: 20140515
  Serious: Yes (Hospitalization)
  Sender: FDA-Public Use
  Company Number: FR-FRI-1000048415

PATIENT
  Age: 89 Year
  Sex: Female

DRUGS (9)
  1. CITALOPRAM [Suspect]
     Indication: DEPRESSION
     Dosage: 1 DF
     Route: 048
  2. PRADAXA [Suspect]
     Indication: ATRIAL FIBRILLATION
     Dosage: 2 DF
     Route: 048
     Dates: start: 2012, end: 20130521
  3. HEMIGOXINE NATIVELLE [Concomitant]
     Indication: CARDIAC FAILURE
     Dosage: 1 DF
     Route: 048
  4. ADENURIC [Concomitant]
     Indication: GOUT
     Dosage: 0.25 FD
     Route: 048
     Dates: start: 2012
  5. BISOCE [Concomitant]
     Indication: HYPERTENSION
     Dosage: 1 DF
     Route: 048
  6. IMOVANE [Concomitant]
     Dosage: 1 DF
     Route: 048
  7. LASILIX [Concomitant]
     Indication: HYPERTENSION
     Dosage: 1 DF
     Route: 048
  8. INEXIUM [Concomitant]
     Indication: PROPHYLAXIS
     Dosage: 1 DF
     Route: 048
  9. LEVOTHYROX [Concomitant]
     Indication: HYPOTHYROIDISM
     Dosage: 37.5 MCG
     Route: 048

REACTIONS (2)
  - Haematemesis [Recovered/Resolved]
  - Anaemia [Recovered/Resolved]
